FAERS Safety Report 7274982 (Version 6)
Quarter: 2014Q1

REPORT INFORMATION
  Report Type: Spontaneous
  Country: US (occurrence: US)
  Receive Date: 20100210
  Receipt Date: 20140114
  Transmission Date: 20141002
  Serious: Yes (Other)
  Sender: FDA-Public Use
  Company Number: US-BAYER-201013307NA

PATIENT
  Age: 22 Year
  Sex: Female
  Weight: 83.18 kg

DRUGS (3)
  1. YASMIN [Suspect]
     Route: 048
     Dates: start: 2005, end: 2009
  2. OCELLA [Suspect]
     Route: 048
     Dates: start: 2005, end: 2009
  3. MULTIVITAMIN [Concomitant]
     Dosage: UNK
     Dates: start: 20070309

REACTIONS (9)
  - Cholelithiasis [Unknown]
  - Cholecystitis [None]
  - Gallbladder cholesterolosis [Unknown]
  - Chest pain [Unknown]
  - Abdominal pain [Unknown]
  - Musculoskeletal pain [Unknown]
  - Nausea [None]
  - Vomiting [None]
  - Abdominal pain upper [None]
